FAERS Safety Report 18600496 (Version 1)
Quarter: 2020Q4

REPORT INFORMATION
  Report Type: Report from Study
  Country: DE (occurrence: DE)
  Receive Date: 20201210
  Receipt Date: 20201210
  Transmission Date: 20210114
  Serious: Yes (Other)
  Sender: FDA-Public Use
  Company Number: DE-SA-2020SA311643

PATIENT

DRUGS (5)
  1. ALEMTUZUMAB [Suspect]
     Active Substance: ALEMTUZUMAB
     Indication: MULTIPLE SCLEROSIS
     Dosage: 12 MG, QD
     Route: 041
     Dates: start: 2014, end: 2014
  2. ALEMTUZUMAB [Suspect]
     Active Substance: ALEMTUZUMAB
     Dosage: 12 MG, QD
     Route: 041
     Dates: start: 2015, end: 2015
  3. ALEMTUZUMAB [Suspect]
     Active Substance: ALEMTUZUMAB
     Dosage: 12 MG, QD
     Route: 041
     Dates: start: 2017, end: 2017
  4. OCREVUS [Concomitant]
     Active Substance: OCRELIZUMAB
  5. ALEMTUZUMAB [Suspect]
     Active Substance: ALEMTUZUMAB
     Dosage: 12 MG, QD
     Route: 041
     Dates: start: 2019, end: 2019

REACTIONS (40)
  - Condition aggravated [Unknown]
  - Dysstasia [Unknown]
  - Disturbance in attention [Unknown]
  - Pelvic floor dysfunction [Unknown]
  - Pruritus [Unknown]
  - Thrombocytopenia [Unknown]
  - Neurogenic bladder [Unknown]
  - Urinary retention [Unknown]
  - Fine motor skill dysfunction [Unknown]
  - Cognitive disorder [Unknown]
  - Aphasia [Unknown]
  - Hypoacusis [Unknown]
  - Autoimmune thyroiditis [Unknown]
  - Hypothyroidism [Unknown]
  - Respiratory tract infection [Unknown]
  - Hypertonic bladder [Recovering/Resolving]
  - Listless [Unknown]
  - Stress urinary incontinence [Recovering/Resolving]
  - Peripheral swelling [Unknown]
  - Limb discomfort [Unknown]
  - Pollakiuria [Recovering/Resolving]
  - Dysphagia [Unknown]
  - Demyelination [Unknown]
  - Lymphocyte count decreased [Unknown]
  - Hypoaesthesia [Unknown]
  - Gait disturbance [Unknown]
  - Condition aggravated [Unknown]
  - Multiple sclerosis [Unknown]
  - Coordination abnormal [Unknown]
  - Muscular weakness [Unknown]
  - Multiple sclerosis relapse [Recovering/Resolving]
  - Drug ineffective [Recovering/Resolving]
  - Fatigue [Unknown]
  - Apathy [Unknown]
  - Infection [Recovered/Resolved]
  - Urinary tract infection [Unknown]
  - Asthenia [Recovering/Resolving]
  - Sensory disturbance [Unknown]
  - Nocturia [Recovering/Resolving]
  - Bladder catheterisation [Unknown]

NARRATIVE: CASE EVENT DATE: 2019
